FAERS Safety Report 7705059-1 (Version None)
Quarter: 2011Q3

REPORT INFORMATION
  Report Type: 
  Country: None (occurrence: None)
  Receive Date: 20110823
  Receipt Date: 20110819
  Transmission Date: 20111222
  Serious: Yes (Death)
  Sender: FDA-Public Use
  Company Number: US-AMGEN-QUU441863

PATIENT
  Age: 36 Year
  Sex: Female

DRUGS (3)
  1. CORTICOSTEROID NOS [Concomitant]
  2. NPLATE [Suspect]
     Indication: IDIOPATHIC THROMBOCYTOPENIC PURPURA
     Dosage: UNK UNK, UNK
     Dates: start: 20100216
  3. RITUXIMAB [Concomitant]
     Dosage: UNK UNK, UNK
     Dates: start: 20100202

REACTIONS (1)
  - HAEMORRHAGE INTRACRANIAL [None]
